FAERS Safety Report 5498956-1 (Version None)
Quarter: 2007Q4

REPORT INFORMATION
  Report Type: 
  Country: None (occurrence: None)
  Receive Date: 20071026
  Receipt Date: 20070509
  Transmission Date: 20080405
  Serious: No
  Sender: FDA-Public Use
  Company Number: A0650618A

PATIENT
  Age: 37 Year
  Sex: Female

DRUGS (5)
  1. ADVAIR DISKUS 100/50 [Suspect]
     Indication: UPPER RESPIRATORY TRACT INFECTION
     Dosage: 1PUFF TWICE PER DAY
     Route: 055
     Dates: start: 20070411, end: 20070411
  2. PROVENTIL [Suspect]
     Dosage: 2PUFF AS REQUIRED
     Route: 055
     Dates: start: 20070411, end: 20070413
  3. CLARITIN [Concomitant]
  4. PROTONIX [Concomitant]
  5. LEVAQUIN [Concomitant]

REACTIONS (5)
  - ANXIETY [None]
  - CRYING [None]
  - DYSPNOEA [None]
  - PALPITATIONS [None]
  - THINKING ABNORMAL [None]
